FAERS Safety Report 22789950 (Version 3)
Quarter: 2024Q1

REPORT INFORMATION
  Report Type: Spontaneous
  Country: US (occurrence: US)
  Receive Date: 20230804
  Receipt Date: 20240315
  Transmission Date: 20240410
  Serious: No
  Sender: FDA-Public Use
  Company Number: US-MYLANLABS-2023M1079324

PATIENT
  Sex: Female

DRUGS (1)
  1. ESTRADIOL TRANSDERMAL SYSTEM [Suspect]
     Active Substance: ESTRADIOL
     Indication: Hormone replacement therapy
     Dosage: 0.05 MILLIGRAM, QD (ONCE WEEKLY)
     Route: 062
     Dates: start: 20220711

REACTIONS (3)
  - Product adhesion issue [Unknown]
  - Wrong technique in product usage process [Unknown]
  - Product substitution issue [Unknown]
